FAERS Safety Report 16380617 (Version 1)
Quarter: 2019Q2

REPORT INFORMATION
  Report Type: Spontaneous
  Country: IT (occurrence: IT)
  Receive Date: 20190601
  Receipt Date: 20190601
  Transmission Date: 20190711
  Serious: Yes (Death, Other)
  Sender: FDA-Public Use
  Company Number: IT-AUROBINDO-AUR-APL-2017-44835

PATIENT

DRUGS (16)
  1. CARBOPLATIN. [Suspect]
     Active Substance: CARBOPLATIN
     Dosage: 1 DF, Q3WK
     Route: 065
  2. CARBOPLATIN. [Suspect]
     Active Substance: CARBOPLATIN
     Dosage: AUC4, EVERY 21 DAYS, 3 CYCLES ()
     Route: 065
  3. CARBOPLATIN. [Suspect]
     Active Substance: CARBOPLATIN
     Dosage: ()
     Route: 065
  4. PEMETREXED. [Suspect]
     Active Substance: PEMETREXED
     Indication: NON-SMALL CELL LUNG CANCER
     Dosage: 375 MG/M2, UNK
     Route: 065
     Dates: start: 2015
  5. PEMETREXED. [Suspect]
     Active Substance: PEMETREXED
     Dosage: 375 MG/M2, EVERY 21 DAYS, 3 CYCLES
     Route: 065
  6. CERITINIB [Suspect]
     Active Substance: CERITINIB
     Dosage: ()
     Route: 065
  7. CRIZOTINIB [Suspect]
     Active Substance: CRIZOTINIB
     Dosage: ()
     Route: 065
  8. CARBOPLATIN. [Suspect]
     Active Substance: CARBOPLATIN
     Indication: NON-SMALL CELL LUNG CANCER
     Dosage: AUC 4; EVERY 21 DAYS () ; CYCLICAL
     Route: 065
     Dates: start: 2015
  9. CARBOPLATIN. [Suspect]
     Active Substance: CARBOPLATIN
     Dosage: 1 DF, Q3WK
     Route: 065
  10. CRIZOTINIB [Suspect]
     Active Substance: CRIZOTINIB
     Indication: NON-SMALL CELL LUNG CANCER
     Dosage: 500 MILLIGRAM
     Route: 065
  11. CARBOPLATIN. [Suspect]
     Active Substance: CARBOPLATIN
     Dosage: ()
     Route: 065
  12. CRIZOTINIB [Suspect]
     Active Substance: CRIZOTINIB
     Dosage: 250 MILLIGRAM, ONCE A DAY
     Route: 065
  13. PEMETREXED DISODIUM [Suspect]
     Active Substance: PEMETREXED DISODIUM
     Indication: NON-SMALL CELL LUNG CANCER
     Dosage: 375 MG/M2, Q3WK
     Route: 065
  14. CARBOPLATIN. [Suspect]
     Active Substance: CARBOPLATIN
     Dosage: AUC 4 (1)
     Route: 065
  15. CERITINIB [Suspect]
     Active Substance: CERITINIB
     Indication: NON-SMALL CELL LUNG CANCER
     Dosage: 750 MILLIGRAM
     Route: 065
  16. PEMETREXED. [Suspect]
     Active Substance: PEMETREXED
     Dosage: 375 MILLIGRAM/SQ. METER
     Route: 065

REACTIONS (7)
  - Malignant neoplasm progression [Unknown]
  - Death [Fatal]
  - Metastases to adrenals [Unknown]
  - Anaemia [Unknown]
  - Thrombocytopenia [Unknown]
  - Off label use [Unknown]
  - Non-small cell lung cancer [Unknown]

NARRATIVE: CASE EVENT DATE: 2015
